FAERS Safety Report 10597421 (Version 2)
Quarter: 2014Q4

REPORT INFORMATION
  Report Type: Report from Study
  Country: CN (occurrence: CN)
  Receive Date: 20141121
  Receipt Date: 20141214
  Transmission Date: 20150529
  Serious: Yes (Death, Hospitalization)
  Sender: FDA-Public Use
  Company Number: PHHY2014CN151728

PATIENT
  Age: 25 Year
  Sex: Female

DRUGS (1)
  1. TASIGNA [Suspect]
     Active Substance: NILOTINIB
     Indication: CHRONIC MYELOID LEUKAEMIA
     Dosage: 400 MG, BID
     Route: 048
     Dates: start: 20131129

REACTIONS (6)
  - Loss of consciousness [Unknown]
  - Chronic myeloid leukaemia [Unknown]
  - Malignant neoplasm progression [Unknown]
  - Pain in extremity [Unknown]
  - Seizure [Recovered/Resolved]
  - Death [Fatal]

NARRATIVE: CASE EVENT DATE: 201404
